FAERS Safety Report 19211273 (Version 1)
Quarter: 2021Q2

REPORT INFORMATION
  Report Type: Spontaneous
  Country: ES (occurrence: ES)
  Receive Date: 20210501
  Receipt Date: 20210501
  Transmission Date: 20210717
  Serious: Yes (Other)
  Sender: FDA-Public Use
  Company Number: ES-ACCORD-223449

PATIENT
  Age: 76 Year

DRUGS (1)
  1. METHOTREXATE. [Suspect]
     Active Substance: METHOTREXATE
     Indication: CROHN^S DISEASE

REACTIONS (4)
  - Mycobacterium tuberculosis complex test positive [Recovering/Resolving]
  - Osteomyelitis [Recovering/Resolving]
  - Abscess [Recovering/Resolving]
  - Arthritis infective [Recovering/Resolving]
